FAERS Safety Report 9452302 (Version 1)
Quarter: 2013Q3

REPORT INFORMATION
  Report Type: Spontaneous
  Country: US (occurrence: None)
  Receive Date: 20130808
  Receipt Date: 20130808
  Transmission Date: 20140515
  Serious: No
  Sender: FDA-Public Use
  Company Number: None

PATIENT
  Sex: Female

DRUGS (1)
  1. GABAPENTIN [Suspect]
     Indication: RADICULOPATHY
     Dosage: GABAPENTIN 600MG 1 1/2 TID

REACTIONS (5)
  - Confusional state [None]
  - Altered visual depth perception [None]
  - Swollen tongue [None]
  - Weight decreased [None]
  - Dysgeusia [None]
